FAERS Safety Report 7278880-4 (Version None)
Quarter: 2011Q1

REPORT INFORMATION
  Report Type: 
  Country: None (occurrence: None)
  Receive Date: 20110207
  Receipt Date: 20110131
  Transmission Date: 20110831
  Serious: Yes (Other)
  Sender: FDA-Public Use
  Company Number: US-CEPHALON-2011000143

PATIENT
  Age: 56 Year
  Sex: Female
  Weight: 74 kg

DRUGS (2)
  1. NUVIGIL [Suspect]
     Route: 048
  2. HORMONES [Concomitant]

REACTIONS (2)
  - VISION BLURRED [None]
  - CATARACT [None]
